FAERS Safety Report 5549835-2 (Version None)
Quarter: 2007Q4

REPORT INFORMATION
  Report Type: 
  Country: None (occurrence: None)
  Receive Date: 20071207
  Receipt Date: 20071207
  Transmission Date: 20080405
  Serious: Yes (Death)
  Sender: FDA-Public Use
  Company Number: None

PATIENT
  Age: 52 Year
  Sex: Female

DRUGS (1)
  1. PHENYTOIN [Suspect]
     Indication: CONVULSION PROPHYLAXIS
     Dosage: 300MG   DAILY  PO
     Route: 048
     Dates: start: 20071027, end: 20071126

REACTIONS (10)
  - BODY TEMPERATURE FLUCTUATION [None]
  - CONDITION AGGRAVATED [None]
  - GRAFT COMPLICATION [None]
  - HEPATOTOXICITY [None]
  - HYPOTENSION [None]
  - HYPOTHERMIA [None]
  - SKIN DISORDER [None]
  - SKIN GRAFT [None]
  - TOXIC EPIDERMAL NECROLYSIS [None]
  - WHITE BLOOD CELL COUNT DECREASED [None]
